FAERS Safety Report 14784366 (Version 1)
Quarter: 2018Q2

REPORT INFORMATION
  Report Type: Spontaneous
  Country: US (occurrence: US)
  Receive Date: 20180420
  Receipt Date: 20180420
  Transmission Date: 20180711
  Serious: Yes (Other)
  Sender: FDA-Public Use
  Company Number: US-BAUSCH-BL-2017-030936

PATIENT
  Age: 34 Year
  Sex: Female
  Weight: 53.12 kg

DRUGS (3)
  1. XENAZINE [Suspect]
     Active Substance: TETRABENAZINE
     Dosage: DOSE WAS INCREASED TO HER CURRENT DOSE
     Route: 048
     Dates: start: 20180405
  2. XENAZINE [Suspect]
     Active Substance: TETRABENAZINE
     Indication: HUNTINGTON^S DISEASE
     Route: 048
     Dates: start: 201509
  3. ZOLOFT [Concomitant]
     Active Substance: SERTRALINE HYDROCHLORIDE
     Indication: PRODUCT USED FOR UNKNOWN INDICATION
     Route: 065

REACTIONS (18)
  - Head injury [Unknown]
  - Affective disorder [Unknown]
  - Dyskinesia [Unknown]
  - Memory impairment [Unknown]
  - Speech disorder [Unknown]
  - Unevaluable event [Unknown]
  - Poor quality sleep [Unknown]
  - Tongue disorder [Unknown]
  - Fall [Unknown]
  - Foot fracture [Unknown]
  - Body mass index decreased [Unknown]
  - Eating disorder [Unknown]
  - Condition aggravated [Unknown]
  - Depression [Unknown]
  - Weight decreased [Unknown]
  - Gait disturbance [Unknown]
  - Prescribed overdose [Recovered/Resolved]
  - Treatment noncompliance [Recovered/Resolved]

NARRATIVE: CASE EVENT DATE: 201509
